FAERS Safety Report 4400807-0 (Version None)
Quarter: 2004Q3

REPORT INFORMATION
  Report Type: 
  Country: None (occurrence: None)
  Receive Date: 20040907
  Receipt Date: 20030617
  Transmission Date: 20050211
  Serious: No
  Sender: FDA-Public Use
  Company Number: US-BRISTOL-MYERS SQUIBB COMPANY-12302899

PATIENT
  Age: 51 Year
  Sex: Female
  Weight: 86 kg

DRUGS (6)
  1. COUMADIN [Suspect]
     Indication: ATRIAL FIBRILLATION
     Dosage: DOSAGE VARIES
     Route: 048
  2. ATENOLOL [Concomitant]
  3. VIVELLE [Concomitant]
  4. CHLOR-TRIMETON [Concomitant]
  5. CALCIUM [Concomitant]
  6. MULTI-VITAMIN [Concomitant]

REACTIONS (5)
  - DYSGEUSIA [None]
  - EYE HAEMORRHAGE [None]
  - EYE IRRITATION [None]
  - EYE REDNESS [None]
  - EYE SWELLING [None]
